FAERS Safety Report 8208992-X (Version None)
Quarter: 2012Q1

REPORT INFORMATION
  Report Type: 
  Country: None (occurrence: None)
  Receive Date: 20120314
  Receipt Date: 20120308
  Transmission Date: 20120608
  Serious: Yes (Other)
  Sender: FDA-Public Use
  Company Number: US-ROCHE-793891

PATIENT
  Sex: Male
  Weight: 72.64 kg

DRUGS (2)
  1. ACCUTANE [Suspect]
     Indication: ACNE
     Route: 065
     Dates: start: 20030520, end: 20030904
  2. ACCUTANE [Suspect]

REACTIONS (4)
  - IRRITABLE BOWEL SYNDROME [None]
  - DRY SKIN [None]
  - MYALGIA [None]
  - INFLAMMATORY BOWEL DISEASE [None]
